FAERS Safety Report 7851852-4 (Version None)
Quarter: 2011Q4

REPORT INFORMATION
  Report Type: 
  Country: None (occurrence: None)
  Receive Date: 20111026
  Receipt Date: 20111017
  Transmission Date: 20120403
  Serious: Yes (Hospitalization)
  Sender: FDA-Public Use
  Company Number: FR-NOVOPROD-337853

PATIENT

DRUGS (8)
  1. VENLAFAXINE [Concomitant]
     Dosage: 150 MG, QD
     Route: 048
  2. ZOLPIDEM [Concomitant]
     Dosage: 1 TAB, QD
     Route: 048
  3. CLONAZEPAM [Concomitant]
     Dosage: 4 MG, QD
     Route: 048
  4. LANTUS [Concomitant]
     Indication: TYPE 1 DIABETES MELLITUS
     Dosage: 18 IU, QD
  5. REPAGLINIDE [Suspect]
     Indication: TYPE 1 DIABETES MELLITUS
     Dosage: 4 MG, QD
     Route: 048
     Dates: start: 20110715, end: 20110725
  6. MIRTAZAPINE [Concomitant]
     Dosage: 30 MG, QD
     Route: 048
  7. DEPAKOTE [Concomitant]
     Dosage: 1250 MG, QD
     Route: 048
  8. REVIA [Concomitant]
     Dosage: 1 TAB, QD
     Route: 048

REACTIONS (1)
  - CYTOLYTIC HEPATITIS [None]
